FAERS Safety Report 17185894 (Version 2)
Quarter: 2020Q1

REPORT INFORMATION
  Report Type: Spontaneous
  Country: US (occurrence: US)
  Receive Date: 20191220
  Receipt Date: 20200116
  Transmission Date: 20200409
  Serious: Yes (Hospitalization, Other)
  Sender: FDA-Public Use
  Company Number: US-SA-2019SA347789

PATIENT
  Age: 54 Year
  Sex: Male

DRUGS (1)
  1. TOUJEO [Suspect]
     Active Substance: INSULIN GLARGINE
     Indication: DIABETES MELLITUS
     Dosage: 75 IU, QD
     Route: 065

REACTIONS (11)
  - Renal impairment [Unknown]
  - Blood glucose increased [Recovering/Resolving]
  - Wrong technique in device usage process [Unknown]
  - Malaise [Recovering/Resolving]
  - Dehydration [Recovering/Resolving]
  - Product dose omission [Recovering/Resolving]
  - Retching [Recovering/Resolving]
  - Diabetes mellitus inadequate control [Recovering/Resolving]
  - Vomiting [Recovering/Resolving]
  - Device operational issue [Recovering/Resolving]
  - Product storage error [Unknown]
